FAERS Safety Report 16053483 (Version 7)
Quarter: 2020Q1

REPORT INFORMATION
  Report Type: Spontaneous
  Country: US (occurrence: US)
  Receive Date: 20190308
  Receipt Date: 20200226
  Transmission Date: 20200409
  Serious: No
  Sender: FDA-Public Use
  Company Number: US-PFIZER INC-2018346082

PATIENT
  Age: 70 Year
  Sex: Female
  Weight: 57 kg

DRUGS (7)
  1. LYRICA [Suspect]
     Active Substance: PREGABALIN
     Indication: HEADACHE
     Dosage: UNK, 1X/DAY (INSTEAD OF TWICE A DAY)
     Dates: start: 20190214, end: 201902
  2. LYRICA [Suspect]
     Active Substance: PREGABALIN
     Indication: NERVE INJURY
     Dosage: 75 MG, 3X/DAY (1 CAPSULE 3 TIMES A DAY)
  3. LYRICA [Suspect]
     Active Substance: PREGABALIN
     Dosage: UNK
  4. LYRICA [Suspect]
     Active Substance: PREGABALIN
     Indication: NEURALGIA
     Dosage: 75 MG, 2X/DAY (THEN INCREASE TO 1 CAPSULE 2 TIMES A DAY)
     Route: 048
  5. LYRICA [Suspect]
     Active Substance: PREGABALIN
     Indication: TRIGEMINAL NEURALGIA
     Dosage: 75 MG, 1X/DAY
     Dates: start: 2018, end: 2018
  6. LYRICA [Suspect]
     Active Substance: PREGABALIN
     Indication: FACIAL PAIN
     Dosage: 75 MG, 1X/DAY (1 CAPSULE EVERY DAY AT BEDTIME FOR 3 DAYS)
  7. LYRICA [Suspect]
     Active Substance: PREGABALIN
     Indication: VTH NERVE INJURY
     Dosage: 75 MG, 2X/DAY (75MG ONE CAPSULE TWICE A DAY BY MOUTH)
     Route: 048
     Dates: start: 2018

REACTIONS (2)
  - Intentional product misuse [Unknown]
  - Feeling abnormal [Not Recovered/Not Resolved]

NARRATIVE: CASE EVENT DATE: 201902
